FAERS Safety Report 6710770-5 (Version None)
Quarter: 2010Q2

REPORT INFORMATION
  Report Type: 
  Country: None (occurrence: None)
  Receive Date: 20100505
  Receipt Date: 20100428
  Transmission Date: 20101027
  Serious: Yes (Hospitalization)
  Sender: FDA-Public Use
  Company Number: DE-BRISTOL-MYERS SQUIBB COMPANY-15079247

PATIENT
  Age: 45 Year
  Sex: Female
  Weight: 66 kg

DRUGS (3)
  1. ABILIFY [Suspect]
     Indication: SCHIZOPHRENIA
     Dosage: USING IN AUG/SEP2009.
     Route: 048
     Dates: start: 20090801, end: 20100121
  2. SEROQUEL [Suspect]
     Indication: SCHIZOPHRENIA
     Dates: start: 20060101
  3. HALDOL [Suspect]

REACTIONS (6)
  - ABDOMINAL SYMPTOM [None]
  - BUTTERFLY RASH [None]
  - EYELID OEDEMA [None]
  - HALLUCINATION, AUDITORY [None]
  - NERVOUSNESS [None]
  - PYREXIA [None]
